FAERS Safety Report 16365553 (Version 1)
Quarter: 2019Q2

REPORT INFORMATION
  Report Type: Spontaneous
  Country: GB (occurrence: GB)
  Receive Date: 20190529
  Receipt Date: 20190529
  Transmission Date: 20190711
  Serious: Yes (Life-Threatening, Other)
  Sender: FDA-Public Use
  Company Number: GB-BAYER-2019-100826

PATIENT
  Age: 4 Year
  Sex: Male

DRUGS (1)
  1. ADALAT [Suspect]
     Active Substance: NIFEDIPINE
     Dosage: UNK

REACTIONS (4)
  - Product administered to patient of inappropriate age [None]
  - Bradycardia [Recovered/Resolved]
  - Toxicity to various agents [None]
  - Cardiac arrest [Recovered/Resolved]
